FAERS Safety Report 22027062 (Version 1)
Quarter: 2023Q1

REPORT INFORMATION
  Report Type: Spontaneous
  Country: US (occurrence: US)
  Receive Date: 20230223
  Receipt Date: 20230223
  Transmission Date: 20230417
  Serious: No
  Sender: FDA-Public Use
  Company Number: US-JNJFOC-20230241658

PATIENT
  Sex: Female

DRUGS (1)
  1. SPRAVATO [Suspect]
     Active Substance: ESKETAMINE
     Indication: Depression
     Route: 045
     Dates: start: 20230214

REACTIONS (3)
  - Musculoskeletal stiffness [Recovered/Resolved]
  - Sedation [Recovered/Resolved]
  - Dissociation [Recovered/Resolved]

NARRATIVE: CASE EVENT DATE: 20230214
